FAERS Safety Report 5460449-5 (Version None)
Quarter: 2007Q3

REPORT INFORMATION
  Report Type: 
  Country: None (occurrence: None)
  Receive Date: 20070919
  Receipt Date: 20070910
  Transmission Date: 20080115
  Serious: Yes (Hospitalization)
  Sender: FDA-Public Use
  Company Number: US-SANOFI-SYNTHELABO-F01200701114

PATIENT
  Sex: Female

DRUGS (7)
  1. NORCO [Concomitant]
     Dates: start: 20070703
  2. COMPAZINE [Concomitant]
     Dates: start: 20070814, end: 20070816
  3. ARANESP [Concomitant]
     Dates: start: 20070814, end: 20070814
  4. CAPECITABINE [Suspect]
     Dosage: D1-D8 Q2W
     Route: 048
     Dates: start: 20070814, end: 20070816
  5. BEVACIZUMAB [Suspect]
     Route: 042
     Dates: start: 20070814, end: 20070816
  6. OXALIPLATIN [Suspect]
     Indication: COLORECTAL CANCER METASTATIC
     Route: 042
     Dates: start: 20070828, end: 20070828
  7. REPLIVA 21/7 [Concomitant]
     Dates: start: 20070808

REACTIONS (2)
  - CHEST PAIN [None]
  - PERICARDITIS [None]
